FAERS Safety Report 18350670 (Version 1)
Quarter: 2020Q4

REPORT INFORMATION
  Report Type: Spontaneous
  Country: BR (occurrence: BR)
  Receive Date: 20201006
  Receipt Date: 20201006
  Transmission Date: 20210114
  Serious: Yes (Other)
  Sender: FDA-Public Use
  Company Number: NVSC2020BR268171

PATIENT
  Sex: Female

DRUGS (3)
  1. TRAVOPROST. [Suspect]
     Active Substance: TRAVOPROST
     Indication: PRODUCT USED FOR UNKNOWN INDICATION
     Dosage: UNK (SINCE THE LAST WEEK OF AUGUST)
     Route: 065
  2. DUO TRAVATAN [Suspect]
     Active Substance: TIMOLOL MALEATE\TRAVOPROST
     Indication: PRODUCT USED FOR UNKNOWN INDICATION
     Dosage: UNK (4 OR 5 YEARS AGO TO MIDDLE OF AUGUST)
     Route: 065
  3. TIMOLOL MALEATE. [Suspect]
     Active Substance: TIMOLOL MALEATE
     Indication: PRODUCT USED FOR UNKNOWN INDICATION
     Dosage: UNK (SINCE THE LAST WEEK OF AUGUST)
     Route: 065

REACTIONS (6)
  - Treatment failure [Unknown]
  - Blindness [Unknown]
  - Eye pain [Not Recovered/Not Resolved]
  - Visual impairment [Unknown]
  - Glaucoma [Unknown]
  - Eye irritation [Not Recovered/Not Resolved]
